FAERS Safety Report 5302534-4 (Version None)
Quarter: 2007Q2

REPORT INFORMATION
  Report Type: 
  Country: None (occurrence: None)
  Receive Date: 20070419
  Receipt Date: 20070411
  Transmission Date: 20071010
  Serious: Yes (Other)
  Sender: FDA-Public Use
  Company Number: US-SHR-US-2007-007034

PATIENT
  Age: 43 Year
  Sex: Female
  Weight: 99 kg

DRUGS (3)
  1. MIRENA [Suspect]
     Indication: CONTRACEPTION
     Dosage: 20 A?G/DAY, CONT
     Route: 015
     Dates: start: 20040817
  2. MICARDIS [Concomitant]
     Indication: HYPERTENSION
     Dosage: 80 MG, UNK
  3. PROTONIX [Concomitant]

REACTIONS (3)
  - AMENORRHOEA [None]
  - AMNESIA [None]
  - OVARIAN CYST [None]
